APPROVED DRUG PRODUCT: DEXTROSE 50%
Active Ingredient: DEXTROSE
Strength: 500MG/ML
Dosage Form/Route: INJECTABLE;INJECTION
Application: A203451 | Product #001 | TE Code: AP
Applicant: INTERNATIONAL MEDICATION SYSTEMS LTD
Approved: Mar 26, 2021 | RLD: No | RS: No | Type: RX